FAERS Safety Report 15043118 (Version 1)
Quarter: 2018Q2

REPORT INFORMATION
  Report Type: Spontaneous
  Country: US (occurrence: US)
  Receive Date: 20180621
  Receipt Date: 20180621
  Transmission Date: 20180711
  Serious: No
  Sender: FDA-Public Use
  Company Number: US-GLAXOSMITHKLINE-US2018107775

PATIENT
  Age: 69 Year
  Sex: Female
  Weight: 43 kg

DRUGS (1)
  1. EQUATE NICOTINE [Suspect]
     Active Substance: NICOTINE
     Indication: PRODUCT USED FOR UNKNOWN INDICATION
     Dosage: 21 MG, QD
     Dates: start: 20180527, end: 20180615

REACTIONS (2)
  - Oral mucosal blistering [Unknown]
  - Lip blister [Unknown]

NARRATIVE: CASE EVENT DATE: 20180527
